FAERS Safety Report 13943444 (Version 3)
Quarter: 2017Q3

REPORT INFORMATION
  Report Type: Report from Study
  Country: None (occurrence: BE)
  Receive Date: 20170907
  Receipt Date: 20170915
  Transmission Date: 20171128
  Serious: Yes (Hospitalization)
  Sender: FDA-Public Use
  Company Number: BE-ABBVIE-17K-013-2091810-00

PATIENT
  Sex: Male

DRUGS (6)
  1. DUODOPA [Suspect]
     Active Substance: CARBIDOPA\LEVODOPA
     Dosage: MD=5ML?CD=3ML/HR DURING 16HRS ?EDA=3ML?ND=2ML/HR DURING 8HRS
     Route: 050
     Dates: start: 20170831, end: 20170901
  2. DUODOPA [Suspect]
     Active Substance: CARBIDOPA\LEVODOPA
     Dosage: MD=5ML??CD=3ML/HR DURING 16HRS ??EDA=3ML??ND=2ML/HR DURING 8HRS
     Route: 050
     Dates: start: 20170901, end: 20170904
  3. DUODOPA [Suspect]
     Active Substance: CARBIDOPA\LEVODOPA
     Indication: PARKINSON^S DISEASE
     Dosage: MD=7.5ML??CD=3ML/HR DURING 16HRS ??EDA=3ML
     Route: 050
     Dates: start: 20170828, end: 201708
  4. DUODOPA [Suspect]
     Active Substance: CARBIDOPA\LEVODOPA
     Dosage: MD=7.5ML??CD=3ML/HR DURING 16HRS ??EDA=3ML
     Route: 050
     Dates: start: 201708, end: 20170831
  5. DUODOPA [Suspect]
     Active Substance: CARBIDOPA\LEVODOPA
     Dosage: MD=5ML, CD=3.6ML/HR DURING 16HRS, EDA=3ML, ND=2.5ML/HR DURING 8HRS
     Route: 050
     Dates: start: 20170912
  6. DUODOPA [Suspect]
     Active Substance: CARBIDOPA\LEVODOPA
     Dosage: MD=4ML, CD=3.3ML/HR DURING 16HRS, EDA=3ML, ND=2.3ML/HR DURING 8HRS
     Route: 050
     Dates: start: 20170904, end: 20170912

REACTIONS (4)
  - Lumbar vertebral fracture [Unknown]
  - Incorrect route of drug administration [Recovered/Resolved]
  - General physical health deterioration [Unknown]
  - Device dislocation [Recovered/Resolved]
